FAERS Safety Report 11145115 (Version 3)
Quarter: 2015Q4

REPORT INFORMATION
  Report Type: Spontaneous
  Country: ES (occurrence: ES)
  Receive Date: 20150528
  Receipt Date: 20151027
  Transmission Date: 20160304
  Serious: Yes (Hospitalization)
  Sender: FDA-Public Use
  Company Number: ES-OTSUKA-2015_001724

PATIENT

DRUGS (4)
  1. PHYSIOLOGICAL SALINE SOLUTION [Concomitant]
     Active Substance: SODIUM CHLORIDE
     Indication: INAPPROPRIATE ANTIDIURETIC HORMONE SECRETION
     Dosage: 1000 ML, QD
     Route: 065
  2. FUROSEMIDE. [Concomitant]
     Active Substance: FUROSEMIDE
     Indication: INAPPROPRIATE ANTIDIURETIC HORMONE SECRETION
     Dosage: UNK
     Route: 065
  3. SODIUM CHLORIDE. [Concomitant]
     Active Substance: SODIUM CHLORIDE
     Indication: INAPPROPRIATE ANTIDIURETIC HORMONE SECRETION
     Dosage: UNK
     Route: 065
  4. SAMSCA [Suspect]
     Active Substance: TOLVAPTAN
     Indication: INAPPROPRIATE ANTIDIURETIC HORMONE SECRETION
     Dosage: 7.5 MG, QD
     Route: 065

REACTIONS (4)
  - Rapid correction of hyponatraemia [Recovered/Resolved]
  - Femur fracture [Unknown]
  - Off label use [Unknown]
  - Fall [Unknown]
